FAERS Safety Report 9164471 (Version 1)
Quarter: 2013Q1

REPORT INFORMATION
  Report Type: Spontaneous
  Country: PR (occurrence: None)
  Receive Date: 20130226
  Receipt Date: 20130226
  Transmission Date: 20140127
  Serious: Yes (Hospitalization, Other)
  Sender: FDA-Public Use
  Company Number: 7193781

PATIENT
  Age: 45 Year
  Sex: Female

DRUGS (3)
  1. LEVOTHYROXINE (LEVOTHYROXINE) [Suspect]
     Indication: HYPOTHYROIDISM
  2. UNSPECIFIED [Suspect]
  3. NIFEDIPINE (NIFEDIPINE) [Concomitant]

REACTIONS (2)
  - Liver injury [None]
  - Hepatitis [None]
